FAERS Safety Report 24929217 (Version 2)
Quarter: 2025Q1

REPORT INFORMATION
  Report Type: Spontaneous
  Country: US (occurrence: US)
  Receive Date: 20250205
  Receipt Date: 20250207
  Transmission Date: 20250408
  Serious: Yes (Other)
  Sender: PFIZER
  Company Number: US-MLMSERVICE-20250123-PI371353-00111-1

PATIENT
  Age: 30 Year
  Sex: Female

DRUGS (3)
  1. SULFAMETHOXAZOLE\TRIMETHOPRIM [Suspect]
     Active Substance: SULFAMETHOXAZOLE\TRIMETHOPRIM
     Indication: Gastroenteritis salmonella
     Dosage: FREQ: 12H; (SMX/TMP) 800/160 MG, ONE DOUBLE-STRENGTH TABLET BY MOUTH TWICE DAILY FOR SEVEN DAYS
     Route: 048
  2. SULFAMETHOXAZOLE\TRIMETHOPRIM [Suspect]
     Active Substance: SULFAMETHOXAZOLE\TRIMETHOPRIM
     Indication: Bacterial food poisoning
  3. CEFIXIME [Suspect]
     Active Substance: CEFIXIME
     Indication: Sinusitis bacterial
     Dosage: 300 MG, 1X/DAY
     Route: 048

REACTIONS (4)
  - Gastroenteritis salmonella [Recovered/Resolved]
  - Condition aggravated [Recovered/Resolved]
  - Dysbiosis [Recovered/Resolved]
  - Off label use [Unknown]
